FAERS Safety Report 5633882-6 (Version None)
Quarter: 2008Q1

REPORT INFORMATION
  Report Type: 
  Country: None (occurrence: None)
  Receive Date: 20080221
  Receipt Date: 20080124
  Transmission Date: 20080703
  Serious: No
  Sender: FDA-Public Use
  Company Number: US-BOEHRINGER INGELHEIM GMBH, GERMANY-2008-BP-01181BP

PATIENT
  Sex: Female

DRUGS (7)
  1. MIRAPEX [Suspect]
     Indication: RESTLESS LEGS SYNDROME
     Route: 048
     Dates: start: 20070101
  2. AGGRENOX [Concomitant]
  3. SPIRONOLACTONE [Concomitant]
  4. METROGEL [Concomitant]
     Route: 061
  5. ZOLOFT [Concomitant]
  6. COZAAR [Concomitant]
  7. TETRACYCLINE [Concomitant]
     Indication: ROSACEA

REACTIONS (4)
  - DYSPNOEA [None]
  - GAIT DISTURBANCE [None]
  - OEDEMA PERIPHERAL [None]
  - WEIGHT INCREASED [None]
